FAERS Safety Report 8424058-8 (Version None)
Quarter: 2012Q2

REPORT INFORMATION
  Report Type: 
  Country: None (occurrence: None)
  Receive Date: 20120608
  Receipt Date: 20110513
  Transmission Date: 20120825
  Serious: No
  Sender: FDA-Public Use
  Company Number: US-ASTRAZENECA-2011SE29653

PATIENT
  Sex: Female

DRUGS (6)
  1. XYLOCAINE [Suspect]
     Route: 065
  2. MORPHINE [Suspect]
  3. INDERAL [Suspect]
     Route: 065
  4. PRILOSEC [Suspect]
     Route: 048
  5. NEXIUM [Suspect]
     Route: 048
  6. PULMICORT [Suspect]
     Route: 055

REACTIONS (12)
  - MENTAL STATUS CHANGES [None]
  - DYSPNOEA [None]
  - HYPOTENSION [None]
  - ASTHMA [None]
  - SOMNOLENCE [None]
  - MALAISE [None]
  - BRONCHIECTASIS [None]
  - HYPERSENSITIVITY [None]
  - VOMITING [None]
  - ABDOMINAL PAIN [None]
  - DIARRHOEA [None]
  - COUGH [None]
